FAERS Safety Report 18096856 (Version 1)
Quarter: 2020Q3

REPORT INFORMATION
  Report Type: Spontaneous
  Country: JP (occurrence: JP)
  Receive Date: 20200731
  Receipt Date: 20200731
  Transmission Date: 20201103
  Serious: Yes (Other)
  Sender: FDA-Public Use
  Company Number: JP-PFIZER INC-2020287971

PATIENT
  Age: 39 Year
  Sex: Male
  Weight: 64 kg

DRUGS (23)
  1. OXYCODONE [Interacting]
     Active Substance: OXYCODONE
     Dosage: 60 MG, DAILY
  2. VONOPRAZAN FUMARATE [Concomitant]
     Active Substance: VONOPRAZAN FUMARATE
     Dosage: 1 DF, 1X/DAY
  3. MAGNESIUM CHLORIDE. [Concomitant]
     Active Substance: MAGNESIUM CHLORIDE
     Dosage: 1 DF, 1X/DAY
  4. FLURBIPROFEN. [Concomitant]
     Active Substance: FLURBIPROFEN
     Indication: WOUND TREATMENT
     Dosage: 50 MG
  5. IFOSFAMIDE. [Concomitant]
     Active Substance: IFOSFAMIDE
  6. CARBOPLATIN. [Concomitant]
     Active Substance: CARBOPLATIN
  7. ETOPOSIDE. [Concomitant]
     Active Substance: ETOPOSIDE
  8. FLUCONAZOLE. [Suspect]
     Active Substance: FLUCONAZOLE
     Dosage: 1 DF, 1X/DAY
  9. OXYCODONE [Interacting]
     Active Substance: OXYCODONE
     Indication: PAIN OF SKIN
     Dosage: 80 MG, DAILY
  10. OXYCODONE [Interacting]
     Active Substance: OXYCODONE
     Dosage: 40 MG
  11. BETAMETHASONE. [Concomitant]
     Active Substance: BETAMETHASONE
     Dosage: 4 DF, 1X/DAY
  12. ACETAMINOPHEN. [Concomitant]
     Active Substance: ACETAMINOPHEN
     Dosage: 1000 MG
  13. HARTMANN^S SOLUTION [Concomitant]
     Active Substance: CALCIUM CHLORIDE\POTASSIUM CHLORIDE\SODIUM CHLORIDE\SODIUM LACTATE
  14. OXYCODONE [Interacting]
     Active Substance: OXYCODONE
     Dosage: 42 MG, DAILY
  15. SULFAMETHOXAZOLE/TRIMETHOPRIM [Concomitant]
     Active Substance: SULFAMETHOXAZOLE\TRIMETHOPRIM
     Dosage: 0.5 DF, 1X/DAY
  16. ACETAMINOPHEN. [Concomitant]
     Active Substance: ACETAMINOPHEN
     Dosage: 2 DF, 3X/DAY
  17. LOXOPROFEN [Concomitant]
     Active Substance: LOXOPROFEN
     Indication: ANALGESIC THERAPY
     Dosage: 1 DF, 3X/DAY
  18. FEBUXOSTAT. [Concomitant]
     Active Substance: FEBUXOSTAT
     Indication: HYPERURICAEMIA
     Dosage: 10 MG
  19. MESNA. [Concomitant]
     Active Substance: MESNA
  20. PHYSIOLOGICAL SALINE SOLUTION [Concomitant]
     Active Substance: SODIUM CHLORIDE
     Dosage: 100 UNK
  21. DEXAMETHASONE. [Concomitant]
     Active Substance: DEXAMETHASONE
  22. OXYCODONE [Interacting]
     Active Substance: OXYCODONE
     Dosage: 18 MG
  23. PHYSIOLOGICAL SALINE SOLUTION [Concomitant]
     Active Substance: SODIUM CHLORIDE
     Dosage: 1500 MG

REACTIONS (4)
  - Miosis [Recovering/Resolving]
  - Drug interaction [Recovering/Resolving]
  - Respiratory depression [Recovering/Resolving]
  - Somnolence [Recovering/Resolving]
